FAERS Safety Report 14310165 (Version 1)
Quarter: 2017Q4

REPORT INFORMATION
  Report Type: Spontaneous
  Country: JP (occurrence: JP)
  Receive Date: 20171220
  Receipt Date: 20171220
  Transmission Date: 20180321
  Serious: Yes (Other)
  Sender: FDA-Public Use
  Company Number: JP-BAUSCH-BL-2017-031902

PATIENT
  Age: 72 Year
  Sex: Male

DRUGS (4)
  1. VISUDYNE [Suspect]
     Active Substance: VERTEPORFIN
     Indication: POLYPOIDAL CHOROIDAL VASCULOPATHY
     Route: 042
  2. VISUDYNE [Suspect]
     Active Substance: VERTEPORFIN
     Indication: AGE-RELATED MACULAR DEGENERATION
  3. AFLIBERCEPT [Suspect]
     Active Substance: AFLIBERCEPT
     Indication: AGE-RELATED MACULAR DEGENERATION
  4. AFLIBERCEPT [Suspect]
     Active Substance: AFLIBERCEPT
     Indication: POLYPOIDAL CHOROIDAL VASCULOPATHY
     Route: 065

REACTIONS (3)
  - Disease progression [Unknown]
  - Polypoidal choroidal vasculopathy [Unknown]
  - Age-related macular degeneration [Unknown]
